FAERS Safety Report 24152564 (Version 2)
Quarter: 2024Q4

REPORT INFORMATION
  Report Type: Spontaneous
  Country: GR (occurrence: GR)
  Receive Date: 20240730
  Receipt Date: 20241218
  Transmission Date: 20250115
  Serious: Yes (Other)
  Sender: GLAND PHARMA LTD
  Company Number: GR-GLANDPHARMA-GR-2024GLNLIT00555

PATIENT
  Age: 40 Year
  Sex: Male

DRUGS (1)
  1. FLUOROURACIL [Suspect]
     Active Substance: FLUOROURACIL
     Indication: Product used for unknown indication
     Route: 057

REACTIONS (3)
  - Subretinal fluid [Recovered/Resolved]
  - Anterior chamber inflammation [Not Recovered/Not Resolved]
  - Corneal toxicity [Recovering/Resolving]
